FAERS Safety Report 4930754-7 (Version None)
Quarter: 2006Q1

REPORT INFORMATION
  Report Type: 
  Country: None (occurrence: None)
  Receive Date: 20060227
  Receipt Date: 20060213
  Transmission Date: 20060701
  Serious: Yes (Hospitalization, Other)
  Sender: FDA-Public Use
  Company Number: 2006021460

PATIENT
  Age: 68 Year
  Sex: Female

DRUGS (5)
  1. LIPITOR [Suspect]
     Indication: BLOOD CHOLESTEROL INCREASED
     Dosage: 20 MG (80 MG, 1/4 TABLET DAILY)
     Dates: start: 20040101
  2. NORVASC [Suspect]
     Indication: HYPERTENSION
     Dosage: 1 IN 1 D
     Dates: start: 20040101
  3. EFFEXOR [Suspect]
     Indication: URINARY INCONTINENCE
     Dosage: 150 MG (75 MG, 2 IN 1 D)
     Dates: start: 20050101
  4. VITAMINS (VITAMINS) [Concomitant]
  5. ASPIRIN [Concomitant]

REACTIONS (9)
  - BLOOD PRESSURE SYSTOLIC INCREASED [None]
  - DEPRESSION [None]
  - FEELING ABNORMAL [None]
  - INTERMITTENT CLAUDICATION [None]
  - NERVE INJURY [None]
  - NEUROPATHY [None]
  - PROCEDURAL COMPLICATION [None]
  - SLEEP DISORDER [None]
  - URINARY INCONTINENCE [None]
